FAERS Safety Report 7082778-4 (Version None)
Quarter: 2010Q4

REPORT INFORMATION
  Report Type: 
  Country: None (occurrence: None)
  Receive Date: 20101104
  Receipt Date: 20101102
  Transmission Date: 20110411
  Serious: Yes (Hospitalization, Other)
  Sender: FDA-Public Use
  Company Number: GB-BRISTOL-MYERS SQUIBB COMPANY-15334337

PATIENT
  Age: 53 Year
  Sex: Male

DRUGS (5)
  1. ONGLYZA [Suspect]
     Dosage: INTERRUPTED ON 26MAY2010.
     Route: 048
     Dates: start: 20100519
  2. LISINOPRIL [Suspect]
     Dates: start: 20090101
  3. METFORMIN [Concomitant]
  4. ATORVASTATIN CALCIUM [Concomitant]
  5. CIALIS [Concomitant]

REACTIONS (2)
  - ANAPHYLACTIC SHOCK [None]
  - URTICARIA [None]
